FAERS Safety Report 17195397 (Version 1)
Quarter: 2019Q4

REPORT INFORMATION
  Report Type: Report from Study
  Country: GB (occurrence: GB)
  Receive Date: 20191224
  Receipt Date: 20191224
  Transmission Date: 20200122
  Serious: Yes (Other)
  Sender: FDA-Public Use
  Company Number: GB-SA-2019SA354608

PATIENT
  Age: 19 Year
  Sex: Male

DRUGS (5)
  1. SPIRONOLACTONE. [Suspect]
     Active Substance: SPIRONOLACTONE
  2. RANITIDINE. [Suspect]
     Active Substance: RANITIDINE
  3. RIFAMPICIN [Suspect]
     Active Substance: RIFAMPIN
  4. MEROPENEM. [Suspect]
     Active Substance: MEROPENEM
  5. TEMAZEPAM. [Suspect]
     Active Substance: TEMAZEPAM

REACTIONS (1)
  - Drug reaction with eosinophilia and systemic symptoms [Recovered/Resolved]
